FAERS Safety Report 5860600-9 (Version None)
Quarter: 2008Q3

REPORT INFORMATION
  Report Type: 
  Country: None (occurrence: None)
  Receive Date: 20080827
  Receipt Date: 20070913
  Transmission Date: 20090109
  Serious: No
  Sender: FDA-Public Use
  Company Number: US-ABBOTT-07P-163-0416966-00

PATIENT
  Sex: Female

DRUGS (8)
  1. COATED PDS [Suspect]
     Indication: BLOOD CHOLESTEROL INCREASED
     Route: 048
     Dates: start: 20070908, end: 20070908
  2. COATED PDS [Suspect]
     Route: 048
     Dates: start: 20070101, end: 20070907
  3. COATED PDS [Suspect]
     Route: 048
     Dates: start: 20070909
  4. ASPIRIN [Concomitant]
     Indication: PROPHYLAXIS
  5. ASPIRIN [Concomitant]
     Indication: ADVERSE DRUG REACTION
  6. LEVOTHYROXINE SODIUM [Concomitant]
     Indication: HYPOTHYROIDISM
  7. RAMIPRIL [Concomitant]
     Indication: CARDIAC DISORDER
  8. METOPROLOL SUCCINATE [Concomitant]
     Indication: CARDIAC DISORDER

REACTIONS (3)
  - FLUSHING [None]
  - PRURITUS [None]
  - RASH [None]
